FAERS Safety Report 7795861-2 (Version None)
Quarter: 2011Q4

REPORT INFORMATION
  Report Type: 
  Country: None (occurrence: None)
  Receive Date: 20111004
  Receipt Date: 20110920
  Transmission Date: 20120403
  Serious: Yes (Other)
  Sender: FDA-Public Use
  Company Number: IN-JNJFOC-20110910863

PATIENT
  Age: 40 Year
  Sex: Male

DRUGS (1)
  1. LISTERINE FRESHBURST [Suspect]
     Indication: DENTAL DISORDER PROPHYLAXIS
     Route: 004
     Dates: start: 20110916, end: 20110918

REACTIONS (4)
  - BURNING SENSATION [None]
  - INCORRECT DOSE ADMINISTERED [None]
  - ORAL MUCOSAL ERYTHEMA [None]
  - APHAGIA [None]
